FAERS Safety Report 18405346 (Version 1)
Quarter: 2020Q4

REPORT INFORMATION
  Report Type: Spontaneous
  Country: US (occurrence: US)
  Receive Date: 20201020
  Receipt Date: 20201020
  Transmission Date: 20210114
  Serious: Yes (Other)
  Sender: FDA-Public Use
  Company Number: US-PFIZER INC-2020403397

PATIENT
  Age: 66 Year
  Sex: Female
  Weight: 65.7 kg

DRUGS (1)
  1. RELPAX [Suspect]
     Active Substance: ELETRIPTAN HYDROBROMIDE
     Indication: MIGRAINE
     Dosage: UNK [40MGS]
     Route: 048
     Dates: start: 20160520, end: 20200905

REACTIONS (5)
  - Coronary artery stenosis [Recovering/Resolving]
  - Chest pain [Unknown]
  - Hyperlipidaemia [Unknown]
  - Hypertension [Unknown]
  - Sleep apnoea syndrome [Unknown]
